FAERS Safety Report 17807613 (Version 4)
Quarter: 2021Q1

REPORT INFORMATION
  Report Type: Spontaneous
  Country: US (occurrence: US)
  Receive Date: 20200520
  Receipt Date: 20210113
  Transmission Date: 20210419
  Serious: Yes (Other)
  Sender: FDA-Public Use
  Company Number: US-SA-2020SA127591

PATIENT
  Age: 67 Year
  Sex: Male

DRUGS (1)
  1. APIDRA [Suspect]
     Active Substance: INSULIN GLULISINE
     Indication: TYPE 2 DIABETES MELLITUS
     Dosage: 5 UNITS PER DAY BEFORE MEALS OR AS NEEDED
     Route: 065
     Dates: start: 2008

REACTIONS (2)
  - Blood glucose increased [Unknown]
  - Diabetes mellitus inadequate control [Unknown]
